FAERS Safety Report 7807482-3 (Version None)
Quarter: 2011Q4

REPORT INFORMATION
  Report Type: 
  Country: None (occurrence: None)
  Receive Date: 20111011
  Receipt Date: 20111004
  Transmission Date: 20120403
  Serious: Yes (Other)
  Sender: FDA-Public Use
  Company Number: PHHY2011AU88662

PATIENT
  Sex: Female

DRUGS (4)
  1. LUCENTIS [Concomitant]
     Dosage: UNK UKN, UNK
  2. LERCANIDIPINE [Concomitant]
     Dosage: UNK UKN, UNK
  3. PERINDOPRIL ERBUMINE [Concomitant]
     Dosage: UNK UKN, UNK
  4. ZOLEDRONOC ACID [Suspect]
     Dosage: UNK UKN, UNK
     Route: 042

REACTIONS (2)
  - EYE SWELLING [None]
  - BLINDNESS [None]
